FAERS Safety Report 10262415 (Version 1)
Quarter: 2014Q2

REPORT INFORMATION
  Report Type: Spontaneous
  Country: FR (occurrence: FR)
  Receive Date: 20140626
  Receipt Date: 20140626
  Transmission Date: 20141212
  Serious: Yes (Hospitalization)
  Sender: FDA-Public Use
  Company Number: FR-BAYER-2014-093198

PATIENT
  Age: 34 Year
  Sex: Female

DRUGS (4)
  1. IZILOX [Suspect]
     Indication: SINUSITIS
     Dosage: 400 MG, UNK
     Route: 048
     Dates: start: 20140218, end: 20140218
  2. POLARAMINE [DEXCHLORPHENIRAMINE MALEATE] [Suspect]
     Dosage: UNK
     Route: 042
     Dates: start: 20140218, end: 20140218
  3. SOLUMEDROL [Suspect]
     Dosage: UNK
     Route: 042
     Dates: start: 20140218, end: 20140218
  4. ADRENALINE [Suspect]
     Dosage: 0.1 MG, UNK
     Route: 042
     Dates: start: 20140218, end: 20140218

REACTIONS (1)
  - Ischaemic stroke [Recovered/Resolved]
